FAERS Safety Report 13160532 (Version 2)
Quarter: 2017Q3

REPORT INFORMATION
  Report Type: Spontaneous
  Country: US (occurrence: US)
  Receive Date: 20170129
  Receipt Date: 20170808
  Transmission Date: 20171127
  Serious: No
  Sender: FDA-Public Use
  Company Number: US-TEVA-729503ACC

PATIENT
  Age: 62 Year
  Sex: Female

DRUGS (13)
  1. VITAMIN B12 [Concomitant]
     Active Substance: CYANOCOBALAMIN
  2. HCTZ [Concomitant]
     Active Substance: HYDROCHLOROTHIAZIDE
  3. MAGNESIUM [Concomitant]
     Active Substance: MAGNESIUM
  4. GABAPENTIN. [Concomitant]
     Active Substance: GABAPENTIN
  5. COPAXONE [Suspect]
     Active Substance: GLATIRAMER ACETATE
     Indication: MULTIPLE SCLEROSIS
     Dosage: 20 MILLIGRAM DAILY;
     Route: 058
  6. VITAMIN D [Concomitant]
     Active Substance: CHOLECALCIFEROL
  7. NEXIUM [Concomitant]
     Active Substance: ESOMEPRAZOLE MAGNESIUM
  8. COPAXONE [Suspect]
     Active Substance: GLATIRAMER ACETATE
     Route: 058
     Dates: start: 20160602
  9. NORVASC [Concomitant]
     Active Substance: AMLODIPINE BESYLATE
  10. MENEST [Concomitant]
     Active Substance: ESTROGENS, ESTERIFIED
  11. PROMETRIUM [Concomitant]
     Active Substance: PROGESTERONE
  12. POTASSIUM [Concomitant]
     Active Substance: POTASSIUM
  13. CRESTOR [Concomitant]
     Active Substance: ROSUVASTATIN CALCIUM

REACTIONS (4)
  - Injection site atrophy [Not Recovered/Not Resolved]
  - Pyrexia [Unknown]
  - Chills [Unknown]
  - Malaise [Unknown]

NARRATIVE: CASE EVENT DATE: 201611
